FAERS Safety Report 20707491 (Version 2)
Quarter: 2022Q2

REPORT INFORMATION
  Report Type: Spontaneous
  Country: SK (occurrence: SK)
  Receive Date: 20220413
  Receipt Date: 20220426
  Transmission Date: 20220721
  Serious: Yes (Hospitalization)
  Sender: FDA-Public Use
  Company Number: SK-TEVA-2022-SK-2025904

PATIENT
  Age: 50 Year
  Sex: Female
  Weight: 100 kg

DRUGS (5)
  1. CETIRIZINE [Interacting]
     Active Substance: CETIRIZINE HYDROCHLORIDE
     Indication: Product used for unknown indication
     Route: 065
  2. IVERMECTIN [Interacting]
     Active Substance: IVERMECTIN
     Indication: COVID-19
     Dosage: 45 MILLIGRAM DAILY; 5 TABLETS OF 3 MG IVERMECTIN EVERY 8 H (TOTAL 45 MG/DAY)
     Route: 048
  3. IVERMECTIN [Interacting]
     Active Substance: IVERMECTIN
     Dosage: IV VETERINARY IVERMECTIN 20MG/2ML INFUSION FROM A 20ML VIAL CONTAINING CONCENTRATION OF 10MG/1ML.
     Route: 041
  4. HYDROCORTISONE [Interacting]
     Active Substance: HYDROCORTISONE
     Indication: Product used for unknown indication
     Route: 065
  5. OFLOXACIN [Interacting]
     Active Substance: OFLOXACIN
     Indication: Product used for unknown indication
     Route: 065

REACTIONS (13)
  - Neurotoxicity [Recovering/Resolving]
  - Urinary incontinence [Recovering/Resolving]
  - Mental status changes [Recovering/Resolving]
  - Unresponsive to stimuli [Recovering/Resolving]
  - Quadriparesis [Recovering/Resolving]
  - Myoclonus [Recovering/Resolving]
  - Extrapyramidal disorder [Recovering/Resolving]
  - Salivary hypersecretion [Recovering/Resolving]
  - Mydriasis [Recovering/Resolving]
  - Vertigo [Recovering/Resolving]
  - Prescribed overdose [Unknown]
  - Drug interaction [Unknown]
  - Off label use [Unknown]
